FAERS Safety Report 13811467 (Version 1)
Quarter: 2017Q3

REPORT INFORMATION
  Report Type: Spontaneous
  Country: US (occurrence: US)
  Receive Date: 20170728
  Receipt Date: 20170728
  Transmission Date: 20171127
  Serious: No
  Sender: FDA-Public Use
  Company Number: US-ROCHE-1210162

PATIENT
  Sex: Female

DRUGS (1)
  1. BONIVA [Suspect]
     Active Substance: IBANDRONATE SODIUM
     Indication: OSTEOPOROSIS PROPHYLAXIS
     Route: 048

REACTIONS (4)
  - Hypersensitivity [Unknown]
  - Sinus headache [Unknown]
  - Malaise [Unknown]
  - Aphonia [Unknown]
